FAERS Safety Report 5164830-3 (Version None)
Quarter: 2006Q4

REPORT INFORMATION
  Report Type: 
  Country: None (occurrence: None)
  Receive Date: 20061124
  Receipt Date: 20061102
  Transmission Date: 20070319
  Serious: Yes (Death, Other)
  Sender: FDA-Public Use
  Company Number: 2006US002516

PATIENT
  Age: 65 Year
  Sex: Male

DRUGS (3)
  1. PROGRAF [Suspect]
     Dosage: SEE IMAGE
     Route: 048
  2. AZATHIOPRINE [Concomitant]
  3. PREDNISONE TAB [Concomitant]

REACTIONS (10)
  - B-CELL LYMPHOMA [None]
  - CATHETER RELATED COMPLICATION [None]
  - HEPATIC NEOPLASM [None]
  - LYMPHOPROLIFERATIVE DISORDER [None]
  - RENAL FAILURE ACUTE [None]
  - TUMOUR LYSIS SYNDROME [None]
  - URATE NEPHROPATHY [None]
  - VENOUS THROMBOSIS [None]
  - VENTRICULAR DYSFUNCTION [None]
  - VENTRICULAR HYPOKINESIA [None]
